FAERS Safety Report 24345846 (Version 1)
Quarter: 2024Q3

REPORT INFORMATION
  Report Type: Spontaneous
  Country: BG (occurrence: BG)
  Receive Date: 20240920
  Receipt Date: 20240920
  Transmission Date: 20241017
  Serious: Yes (Other)
  Sender: BAUSCH AND LOMB
  Company Number: BG-TEVA-VS-3241565

PATIENT
  Age: 62 Year
  Sex: Male

DRUGS (6)
  1. DEXAMETHASONE [Suspect]
     Active Substance: DEXAMETHASONE
     Indication: Plasma cell leukaemia
     Dosage: 20 MG ON DAYS 1, 2, 8, 9, 15, 16, 22 AND 23 FOR EACH 28-DAY CYCLE
     Route: 042
  2. LENALIDOMIDE [Suspect]
     Active Substance: LENALIDOMIDE
     Indication: Plasma cell leukaemia
     Route: 065
  3. BORTEZOMIB [Suspect]
     Active Substance: BORTEZOMIB
     Indication: Plasma cell leukaemia
     Route: 065
     Dates: start: 202402
  4. CARFILZOMIB [Concomitant]
     Active Substance: CARFILZOMIB
     Indication: Product used for unknown indication
     Dosage: ON DAYS 1 AND 2
     Route: 042
  5. CARFILZOMIB [Concomitant]
     Active Substance: CARFILZOMIB
     Dosage: 56 MG/M2 ON DAYS 8, 9, 15 AND 16 OF CYCLE 1; AND AT THE DOSE OF 56 MG/M2 ON DAYS 1, 2, 8, 9, 15
     Route: 042
  6. ISATUXIMAB [Concomitant]
     Active Substance: ISATUXIMAB
     Indication: Product used for unknown indication
     Dosage: WEEKLY IN THE FIRST CYCLE AND EVERY TWO WEEKS
     Route: 042

REACTIONS (3)
  - Thrombocytopenia [Unknown]
  - Haematotoxicity [Unknown]
  - Drug ineffective [Unknown]
